FAERS Safety Report 10330692 (Version 1)
Quarter: 2014Q3

REPORT INFORMATION
  Report Type: Spontaneous
  Country: IT (occurrence: None)
  Receive Date: 20140717
  Receipt Date: 20140717
  Transmission Date: 20150326
  Serious: Yes (Other)
  Sender: FDA-Public Use
  Company Number: FK201402653

PATIENT
  Age: 27 Year
  Sex: Male

DRUGS (2)
  1. CEFTRIAXONE (CEFTRIAXONE) (CEFTRIAXONE) [Suspect]
     Active Substance: CEFTRIAXONE
     Indication: PYREXIA
     Route: 030
     Dates: start: 20140625, end: 20140627
  2. AUGMENTIN [Concomitant]
     Active Substance: AMOXICILLIN\CLAVULANATE POTASSIUM

REACTIONS (3)
  - Treatment failure [None]
  - Bronchopneumonia [None]
  - Drug ineffective [None]

NARRATIVE: CASE EVENT DATE: 20140627
